FAERS Safety Report 8716350 (Version 2)
Quarter: 2013Q4

REPORT INFORMATION
  Report Type: Report from Study
  Country: US (occurrence: US)
  Receive Date: 20120810
  Receipt Date: 20131031
  Transmission Date: 20140711
  Serious: No
  Sender: FDA-Public Use
  Company Number: US-009507513-2012SP030970

PATIENT
  Age: 65 Year
  Sex: Male
  Weight: 90.72 kg

DRUGS (10)
  1. BOCEPREVIR [Suspect]
     Indication: PRODUCT USED FOR UNKNOWN INDICATION
     Dosage: 800 MG, Q8H
     Route: 048
  2. REBETOL [Suspect]
  3. PEGASYS [Suspect]
  4. PROCRIT [Concomitant]
  5. ZETIA [Concomitant]
  6. HYDROCHLOROT [Concomitant]
  7. AMLODIPINE BESYLATE (+) BENAZEPRIL HYDROCHLORIDE [Concomitant]
  8. LANSOPRAZOLE [Concomitant]
  9. KLOR-CON [Concomitant]
  10. VITAMIN D (UNSPECIFIED) [Concomitant]

REACTIONS (4)
  - Nausea [Unknown]
  - Anaemia [Unknown]
  - Blood pressure decreased [Unknown]
  - Dysgeusia [Unknown]
